FAERS Safety Report 22235836 (Version 1)
Quarter: 2023Q2

REPORT INFORMATION
  Report Type: Spontaneous
  Country: CN (occurrence: CN)
  Receive Date: 20230420
  Receipt Date: 20230420
  Transmission Date: 20230721
  Serious: Yes (Hospitalization, Other)
  Sender: FDA-Public Use
  Company Number: CN-009507513-2304CHN006658

PATIENT
  Age: 65 Year
  Sex: Male

DRUGS (11)
  1. PEMBROLIZUMAB [Suspect]
     Active Substance: PEMBROLIZUMAB
     Indication: Oesophageal squamous cell carcinoma
     Dosage: 200 MG D1, Q3W
     Dates: start: 20201218, end: 20201218
  2. PEMBROLIZUMAB [Suspect]
     Active Substance: PEMBROLIZUMAB
     Dosage: 200 MG D1, Q3W
     Dates: start: 20210108, end: 20210108
  3. PEMBROLIZUMAB [Suspect]
     Active Substance: PEMBROLIZUMAB
     Dosage: 200MG D1, Q3W( C3-C6)
     Dates: start: 20210128, end: 20210420
  4. PEMBROLIZUMAB [Suspect]
     Active Substance: PEMBROLIZUMAB
     Dosage: 200 MG D1, Q3W
     Dates: start: 20210422, end: 20210422
  5. FLUOROURACIL [Suspect]
     Active Substance: FLUOROURACIL
     Indication: Oesophageal squamous cell carcinoma
     Dosage: 800 MG D2, Q3W
     Dates: start: 20201218, end: 20201218
  6. FLUOROURACIL [Suspect]
     Active Substance: FLUOROURACIL
     Dosage: 800 MG D2, Q3W
     Dates: start: 20210108, end: 20210108
  7. FLUOROURACIL [Suspect]
     Active Substance: FLUOROURACIL
     Dosage: 800 MG D2, Q3W (C3-C6)
     Dates: start: 20210128, end: 20210420
  8. FLUOROURACIL [Suspect]
     Active Substance: FLUOROURACIL
     Dosage: 800 MG D2, Q3W
     Dates: start: 20210422, end: 20210422
  9. CISPLATIN [Suspect]
     Active Substance: CISPLATIN
     Indication: Oesophageal squamous cell carcinoma
     Dosage: 1000 MG D2, Q3W
     Dates: start: 20201218, end: 20201218
  10. CISPLATIN [Suspect]
     Active Substance: CISPLATIN
     Dosage: 1000 MG D2, Q3W
     Dates: start: 20210108, end: 20210108
  11. CISPLATIN [Suspect]
     Active Substance: CISPLATIN
     Dosage: 100 MG D2, Q3W (C3-C6)
     Dates: start: 20210128, end: 20210420

REACTIONS (21)
  - Duodenal ulcer [Unknown]
  - Radiotherapy [Unknown]
  - Pneumonitis [Unknown]
  - Oesophageal squamous cell carcinoma [Unknown]
  - Recurrent cancer [Unknown]
  - Malignant neoplasm progression [Unknown]
  - Hydronephrosis [Unknown]
  - Radiotherapy [Unknown]
  - Renal hydrocele [Unknown]
  - Postrenal failure [Unknown]
  - Adrenal insufficiency [Unknown]
  - Immune-mediated hypothyroidism [Unknown]
  - Pigmentation disorder [Unknown]
  - Therapy partial responder [Unknown]
  - Chronic gastritis [Unknown]
  - White blood cell count decreased [Recovering/Resolving]
  - Rash [Recovering/Resolving]
  - Ureteral wall thickening [Unknown]
  - Back pain [Recovering/Resolving]
  - Inappropriate schedule of product administration [Unknown]
  - Inappropriate schedule of product administration [Unknown]

NARRATIVE: CASE EVENT DATE: 20210127
